FAERS Safety Report 10771943 (Version 1)
Quarter: 2015Q1

REPORT INFORMATION
  Report Type: Report from Study
  Country: None (occurrence: US)
  Receive Date: 20150206
  Receipt Date: 20150206
  Transmission Date: 20150721
  Serious: Yes (Hospitalization, Other)
  Sender: FDA-Public Use
  Company Number: US-BIOGEN USA-2014BI132448

PATIENT
  Age: 42 Year
  Sex: Female

DRUGS (3)
  1. AVONEX [Suspect]
     Active Substance: INTERFERON BETA-1A
     Route: 030
     Dates: start: 20131228
  2. AVONEX [Suspect]
     Active Substance: INTERFERON BETA-1A
     Route: 030
     Dates: start: 19980801
  3. AVONEX [Suspect]
     Active Substance: INTERFERON BETA-1A
     Indication: MULTIPLE SCLEROSIS
     Route: 030
     Dates: start: 19980601

REACTIONS (10)
  - Blood pressure increased [Recovered/Resolved]
  - Procedural complication [Recovered/Resolved]
  - Procedural pain [Recovered/Resolved]
  - Dehydration [Not Recovered/Not Resolved]
  - Gallbladder pain [Recovered/Resolved]
  - White blood cell count increased [Recovered/Resolved]
  - Bladder disorder [Not Recovered/Not Resolved]
  - Drug hypersensitivity [Recovered/Resolved]
  - Decreased appetite [Recovered/Resolved]
  - Hypothyroidism [Not Recovered/Not Resolved]

NARRATIVE: CASE EVENT DATE: 2014
